FAERS Safety Report 18715737 (Version 2)
Quarter: 2021Q1

REPORT INFORMATION
  Report Type: Report from Study
  Country: CL (occurrence: CL)
  Receive Date: 20210108
  Receipt Date: 20210217
  Transmission Date: 20210419
  Serious: Yes (Hospitalization, Other)
  Sender: FDA-Public Use
  Company Number: CL-IPSEN BIOPHARMACEUTICALS, INC.-2020-08838

PATIENT
  Age: 78 Year
  Sex: Female

DRUGS (1)
  1. SOMATULINE AUTOGEL [Suspect]
     Active Substance: LANREOTIDE ACETATE
     Indication: ACROMEGALY
     Dosage: SITE:RIGHT ARM
     Route: 058
     Dates: start: 20200101

REACTIONS (8)
  - Hospitalisation [Unknown]
  - Oedema peripheral [Not Recovered/Not Resolved]
  - Condition aggravated [Unknown]
  - Cardiac failure [Not Recovered/Not Resolved]
  - Ascites [Unknown]
  - Fluid retention [Unknown]
  - Liver injury [Unknown]
  - Weight decreased [Unknown]

NARRATIVE: CASE EVENT DATE: 2020
